FAERS Safety Report 4502767-0 (Version None)
Quarter: 2004Q4

REPORT INFORMATION
  Report Type: 
  Country: None (occurrence: None)
  Receive Date: 20041116
  Receipt Date: 20041109
  Transmission Date: 20050328
  Serious: Yes (Life-Threatening, Disabling)
  Sender: FDA-Public Use
  Company Number: US-MERCK-0411USA01657

PATIENT
  Age: 63 Year
  Sex: Female

DRUGS (2)
  1. VIOXX [Suspect]
     Indication: ARTHRITIS
     Route: 048
     Dates: start: 20010101, end: 20040101
  2. GLUCOPHAGE [Concomitant]
     Route: 065

REACTIONS (7)
  - ABDOMINAL PAIN UPPER [None]
  - AMNESIA [None]
  - DYSPHEMIA [None]
  - HEADACHE [None]
  - HEART RATE INCREASED [None]
  - HYPOAESTHESIA [None]
  - WEIGHT DECREASED [None]
